FAERS Safety Report 4791208-4 (Version None)
Quarter: 2005Q4

REPORT INFORMATION
  Report Type: 
  Country: None (occurrence: None)
  Receive Date: 20051005
  Receipt Date: 20050922
  Transmission Date: 20060501
  Serious: Yes (Death, Hospitalization)
  Sender: FDA-Public Use
  Company Number: GBWYE776127JUN05

PATIENT
  Age: 40 Year
  Sex: Male

DRUGS (11)
  1. RAPAMUNE [Suspect]
     Indication: IMMUNOSUPPRESSANT DRUG THERAPY
     Dosage: 2 MG 1X PER 1 DAY
     Route: 048
     Dates: start: 20050426
  2. MYFORTIC (MYCOPHENOLIC ACID) [Suspect]
     Indication: RENAL TRANSPLANT
     Dosage: 360 MG 3X PER 1 DAY
     Dates: start: 20050426
  3. ATORVASTATIN CALCIUM [Concomitant]
  4. LISINOPRIL [Concomitant]
  5. FUROSEMIDE [Concomitant]
  6. LANSOPRAZOLE [Concomitant]
  7. ALLOPURINOL [Concomitant]
  8. DOXAZOSIN (DOXAZOSIN) [Concomitant]
  9. PREDNISONE [Concomitant]
  10. SODIUM BICARBONATE IN PLASTIC CONTAINER [Concomitant]
  11. AUGMENTIN '125' [Concomitant]

REACTIONS (6)
  - C-REACTIVE PROTEIN INCREASED [None]
  - CARDIO-RESPIRATORY ARREST [None]
  - DYSPNOEA [None]
  - LABORATORY TEST ABNORMAL [None]
  - MALAISE [None]
  - SEPSIS [None]
